FAERS Safety Report 5745019-3 (Version None)
Quarter: 2008Q2

REPORT INFORMATION
  Report Type: 
  Country: None (occurrence: None)
  Receive Date: 20080521
  Receipt Date: 20080514
  Transmission Date: 20081010
  Serious: Yes (Other)
  Sender: FDA-Public Use
  Company Number: PHHO2007GB04131

PATIENT
  Age: 38 Year
  Sex: Female
  Weight: 45 kg

DRUGS (3)
  1. EXJADE [Suspect]
     Indication: BLOOD IRON INCREASED
     Dosage: 875 MG, QD
     Route: 048
     Dates: start: 20061019, end: 20061124
  2. EXJADE [Suspect]
     Dosage: NO TREATMENT
     Dates: start: 20061125, end: 20061221
  3. EXJADE [Suspect]
     Dosage: 375 MG, QD
     Route: 048
     Dates: start: 20061222, end: 20070220

REACTIONS (7)
  - ANGIOEDEMA [None]
  - BLOOD AMYLASE INCREASED [None]
  - INTRAOCULAR PRESSURE INCREASED [None]
  - PAROTID GLAND ENLARGEMENT [None]
  - PERIORBITAL OEDEMA [None]
  - RASH MACULO-PAPULAR [None]
  - VISION BLURRED [None]
